FAERS Safety Report 9374424 (Version 1)
Quarter: 2013Q2

REPORT INFORMATION
  Report Type: Report from Study
  Country: BR (occurrence: BR)
  Receive Date: 20130628
  Receipt Date: 20130628
  Transmission Date: 20140414
  Serious: Yes (Death)
  Sender: FDA-Public Use
  Company Number: PHHY2013BR066713

PATIENT
  Sex: Female

DRUGS (1)
  1. DIOVAN HCT [Suspect]
     Indication: BLOOD PRESSURE ABNORMAL
     Dosage: 0.5 DF (160MG VALS/ 12.5MG HYDR), BID, IN THE MORNING AND NIGHT

REACTIONS (2)
  - Death [Fatal]
  - Wrong technique in drug usage process [Unknown]
